FAERS Safety Report 5399304-8 (Version None)
Quarter: 2007Q3

REPORT INFORMATION
  Report Type: 
  Country: None (occurrence: None)
  Receive Date: 20070727
  Receipt Date: 20070605
  Transmission Date: 20080115
  Serious: Yes (Other)
  Sender: FDA-Public Use
  Company Number: US-PURDUE-USA_2007_0028408

PATIENT
  Sex: Female

DRUGS (1)
  1. OXYCONTIN [Suspect]
     Indication: BACK PAIN
     Dosage: UNK MG, UNK
     Route: 048
     Dates: end: 20010101

REACTIONS (9)
  - ASTHMA [None]
  - BLINDNESS [None]
  - CARDIAC DISORDER [None]
  - CONSTIPATION [None]
  - CONVULSION [None]
  - DRUG WITHDRAWAL SYNDROME [None]
  - INCONTINENCE [None]
  - SERUM SEROTONIN DECREASED [None]
  - SKIN ULCER [None]
